FAERS Safety Report 8815595 (Version 1)
Quarter: 2012Q4

REPORT INFORMATION
  Report Type: 
  Country: JP (occurrence: JP)
  Receive Date: 20120928
  Receipt Date: 20120928
  Transmission Date: 20130627
  Serious: Yes (Hospitalization, Other)
  Sender: FDA-Public Use
  Company Number: JP-BRISTOL-MYERS SQUIBB COMPANY-17005976

PATIENT
  Age: 37 Year
  Sex: Male

DRUGS (2)
  1. STOCRIN TABS [Suspect]
     Route: 048
  2. TRUVADA [Concomitant]

REACTIONS (1)
  - Renal failure acute [Unknown]
